FAERS Safety Report 4872958-8 (Version None)
Quarter: 2006Q1

REPORT INFORMATION
  Report Type: 
  Country: None (occurrence: None)
  Receive Date: 20060105
  Receipt Date: 20050426
  Transmission Date: 20060701
  Serious: No
  Sender: FDA-Public Use
  Company Number: US-BRISTOL-MYERS SQUIBB COMPANY-12946083

PATIENT
  Age: 30 Year
  Sex: Male

DRUGS (1)
  1. SERZONE [Suspect]
     Dates: start: 20010101

REACTIONS (2)
  - SEROTONIN SYNDROME [None]
  - THEFT [None]
